FAERS Safety Report 14498812 (Version 1)
Quarter: 2018Q1

REPORT INFORMATION
  Report Type: Report from Study
  Country: MX (occurrence: MX)
  Receive Date: 20180207
  Receipt Date: 20180207
  Transmission Date: 20180509
  Serious: Yes (Other)
  Sender: FDA-Public Use
  Company Number: PHHY2018MX014325

PATIENT
  Sex: Female
  Weight: 62 kg

DRUGS (10)
  1. CO-DIOVAN [Suspect]
     Active Substance: HYDROCHLOROTHIAZIDE\VALSARTAN
     Indication: HYPERTENSION
     Dosage: 1.5 DF (HYDROCHLOROTHIAZIDE 12. MG, VALSARTAN 160 MG), BID (IN THE MORNING AND AT NIGHT)
     Route: 048
  2. CO-DIOVAN [Suspect]
     Active Substance: HYDROCHLOROTHIAZIDE\VALSARTAN
     Dosage: 1 DF, (HYDROCHLOROTHIAZIDE 12. MG, VALSARTAN 160 MG), QD
     Route: 048
  3. OMURO [Concomitant]
     Indication: COLITIS
     Dosage: UNK (15 MIN BEFORE THE MEAL) (4 OR 5 MONTHS AGO)
     Route: 048
  4. HUMYLUB OFTENO [Concomitant]
     Indication: EYE LUBRICATION THERAPY
     Dosage: 1 DRP, QD
     Route: 047
  5. ROGASTRIL [Concomitant]
     Indication: COLITIS
     Dosage: 1 DF, BID
     Route: 048
  6. OMEPRAZOLE. [Concomitant]
     Active Substance: OMEPRAZOLE
     Indication: COLITIS
     Dosage: 1 DF, QD (IN THE MORNING) (4 OR 5 MONTHS AGO)
     Route: 048
  7. BIOTRIN [Concomitant]
     Indication: BLOOD CHOLESTEROL INCREASED
     Dosage: 1 DF (10+10), QHS
     Route: 048
  8. USANA MULTIMINERAL [Concomitant]
     Indication: NUTRITIONAL SUPPLEMENTATION
     Dosage: 1 DF, QD
     Route: 065
     Dates: start: 200401
  9. VYTORIN [Concomitant]
     Active Substance: EZETIMIBE\SIMVASTATIN
     Indication: BLOOD CHOLESTEROL ABNORMAL
     Dosage: 1 DF, QD
     Route: 065
  10. RIOPAN [Concomitant]
     Active Substance: MAGALDRATE
     Indication: COLITIS
     Dosage: 1 DF, PRN
     Route: 048

REACTIONS (7)
  - Glaucoma [Recovered/Resolved]
  - Blood pressure inadequately controlled [Recovered/Resolved]
  - Wrong technique in product usage process [Not Recovered/Not Resolved]
  - Malaise [Unknown]
  - Drug prescribing error [Not Recovered/Not Resolved]
  - Extrasystoles [Unknown]
  - Nasopharyngitis [Unknown]
